FAERS Safety Report 9787681 (Version 2)
Quarter: 2014Q1

REPORT INFORMATION
  Report Type: Spontaneous
  Country: JP (occurrence: JP)
  Receive Date: 20131230
  Receipt Date: 20140128
  Transmission Date: 20141002
  Serious: Yes (Death)
  Sender: FDA-Public Use
  Company Number: JP-JNJFOC-20131213387

PATIENT
  Age: 83 Year
  Sex: Female
  Weight: 56 kg

DRUGS (9)
  1. XARELTO [Suspect]
     Indication: CEREBROVASCULAR ACCIDENT PROPHYLAXIS
     Route: 048
     Dates: start: 20131111, end: 20131212
  2. XARELTO [Suspect]
     Indication: ATRIAL FIBRILLATION
     Route: 048
     Dates: start: 20131111, end: 20131212
  3. PLAVIX [Concomitant]
     Route: 048
  4. NORVASC [Concomitant]
     Route: 048
  5. TAMBOCOR [Concomitant]
     Route: 048
  6. NITOROL [Concomitant]
     Route: 048
  7. HALCION [Concomitant]
     Route: 048
  8. LYRICA [Concomitant]
     Route: 048
  9. RIVOTRIL [Concomitant]
     Route: 048

REACTIONS (1)
  - Embolic stroke [Fatal]
